FAERS Safety Report 15331984 (Version 4)
Quarter: 2019Q2

REPORT INFORMATION
  Report Type: Spontaneous
  Country: US (occurrence: US)
  Receive Date: 20180829
  Receipt Date: 20190607
  Transmission Date: 20190711
  Serious: Yes (Death, Other)
  Sender: FDA-Public Use
  Company Number: US-009507513-1808USA011638

PATIENT
  Age: 72 Year
  Sex: Male

DRUGS (5)
  1. PROVENTIL [Suspect]
     Active Substance: ALBUTEROL
     Indication: CHRONIC OBSTRUCTIVE PULMONARY DISEASE
     Dosage: 2 PUFFS EVERY 6 HOURS
     Route: 055
     Dates: start: 2012
  2. PREDNISONE. [Concomitant]
     Active Substance: PREDNISONE
  3. PROVENTIL [Suspect]
     Active Substance: ALBUTEROL
     Dosage: 1 PUFF, EVERY 6 HOURS
  4. SYMBICORT [Concomitant]
     Active Substance: BUDESONIDE\FORMOTEROL FUMARATE DIHYDRATE
  5. XANAX [Concomitant]
     Active Substance: ALPRAZOLAM

REACTIONS (10)
  - Product quality issue [Unknown]
  - Product quality issue [Unknown]
  - Death [Fatal]
  - Product quality issue [Unknown]
  - Intentional product misuse [Unknown]
  - Product dose omission [Unknown]
  - Poor quality product administered [Unknown]
  - Product label issue [Unknown]
  - Dyspnoea [Not Recovered/Not Resolved]
  - Product use in unapproved indication [Unknown]

NARRATIVE: CASE EVENT DATE: 2012
